FAERS Safety Report 12503420 (Version 2)
Quarter: 2016Q3

REPORT INFORMATION
  Report Type: Spontaneous
  Country: US (occurrence: US)
  Receive Date: 20160628
  Receipt Date: 20160729
  Transmission Date: 20161109
  Serious: No
  Sender: FDA-Public Use
  Company Number: US-PFIZER INC-2016283477

PATIENT
  Age: 64 Year
  Sex: Male
  Weight: 91.61 kg

DRUGS (2)
  1. ADVAIR HFA [Concomitant]
     Active Substance: FLUTICASONE PROPIONATE\SALMETEROL XINAFOATE
     Indication: ASTHMA
     Dosage: [FLUTICASONE PROPIONATE 250MCG]/[SALMETEROL XINAFOATE 50MCG], DISCUS INHALE, 2X/DAY
     Route: 048
  2. ALAVERT ALLERGY [Suspect]
     Active Substance: LORATADINE
     Indication: SEASONAL ALLERGY
     Dosage: 10 MG, 1X/DAY
     Route: 048
     Dates: start: 20160527, end: 20160530

REACTIONS (4)
  - Poor quality drug administered [Unknown]
  - Dysgeusia [Unknown]
  - Product size issue [Unknown]
  - Product taste abnormal [Unknown]

NARRATIVE: CASE EVENT DATE: 201605
